FAERS Safety Report 14038337 (Version 7)
Quarter: 2019Q2

REPORT INFORMATION
  Report Type: Spontaneous
  Country: US (occurrence: US)
  Receive Date: 20171004
  Receipt Date: 20190401
  Transmission Date: 20190711
  Serious: Yes (Other)
  Sender: FDA-Public Use
  Company Number: US-PFIZER INC-2017406998

PATIENT
  Age: 75 Year
  Sex: Female
  Weight: 52.61 kg

DRUGS (15)
  1. IBRANCE [Suspect]
     Active Substance: PALBOCICLIB
     Dosage: 100 MG, CYCLIC (DAILY, 21 DAYS ON, THEN 7 DAYS OFF)
     Route: 048
     Dates: start: 20170919
  2. ARMOUR THYROID [Concomitant]
     Active Substance: THYROID, PORCINE
     Indication: HYPOTHYROIDISM
     Dosage: 125 MG, 1X/DAY
     Route: 048
  3. MULTI COMPLETE [Concomitant]
     Dosage: UNK
  4. MORPHINE [Concomitant]
     Active Substance: MORPHINE
     Dosage: UNK
  5. PEPCID AC [Concomitant]
     Active Substance: FAMOTIDINE
     Dosage: UNK
  6. IBRANCE [Suspect]
     Active Substance: PALBOCICLIB
     Dosage: 75 MG, 1X/DAY
     Route: 048
  7. AROMASIN [Concomitant]
     Active Substance: EXEMESTANE
     Dosage: 25 MG, UNK
  8. PROBIOTIC [Concomitant]
     Active Substance: PROBIOTICS NOS
     Dosage: UNK
  9. EXEMESTANE. [Concomitant]
     Active Substance: EXEMESTANE
     Dosage: 25 MG, UNK
  10. IBRANCE [Suspect]
     Active Substance: PALBOCICLIB
     Indication: BREAST CANCER METASTATIC
     Dosage: 100 MG, DAILY
     Route: 048
  11. IBRANCE [Suspect]
     Active Substance: PALBOCICLIB
     Dosage: 75 MG, CYCLIC (BY MOUTH ONCE DAILY WITH FOOD FOR 21 DAYS, THEN 7 DAYS OFF)
     Route: 048
     Dates: start: 20170915
  12. VITAMIN B-12-METH [Concomitant]
     Dosage: UNK
  13. CLARITIN [Concomitant]
     Active Substance: LORATADINE
     Dosage: UNK
  14. MORPHINE SULPHATE [Concomitant]
     Active Substance: MORPHINE SULFATE
     Dosage: UNK
  15. LEVOTHYROXINE. [Concomitant]
     Active Substance: LEVOTHYROXINE
     Dosage: 300 UG, UNK

REACTIONS (12)
  - Throat irritation [Not Recovered/Not Resolved]
  - Neuropathy peripheral [Not Recovered/Not Resolved]
  - White blood cell count decreased [Not Recovered/Not Resolved]
  - Stomatitis [Not Recovered/Not Resolved]
  - Breast swelling [Not Recovered/Not Resolved]
  - Constipation [Not Recovered/Not Resolved]
  - Energy increased [Not Recovered/Not Resolved]
  - Neoplasm progression [Not Recovered/Not Resolved]
  - Arthritis [Not Recovered/Not Resolved]
  - Headache [Not Recovered/Not Resolved]
  - Oropharyngeal pain [Not Recovered/Not Resolved]
  - White blood cell count abnormal [Unknown]

NARRATIVE: CASE EVENT DATE: 201806
